FAERS Safety Report 20472838 (Version 1)
Quarter: 2022Q1

REPORT INFORMATION
  Report Type: Report from Study
  Country: CA (occurrence: CA)
  Receive Date: 20220215
  Receipt Date: 20220215
  Transmission Date: 20220423
  Serious: Yes (Hospitalization)
  Sender: FDA-Public Use
  Company Number: CA-JNJFOC-20220158787

PATIENT
  Age: 14 Year
  Sex: Female
  Weight: 59 kg

DRUGS (1)
  1. REMICADE [Suspect]
     Active Substance: INFLIXIMAB
     Indication: Crohn^s disease
     Dosage: RECEIVED A DOSE OF 5 MG/KG.
     Route: 042

REACTIONS (4)
  - Thrombosis [Unknown]
  - Helicobacter infection [Unknown]
  - Off label use [Unknown]
  - Product use issue [Unknown]
